FAERS Safety Report 15488688 (Version 1)
Quarter: 2018Q4

REPORT INFORMATION
  Report Type: Spontaneous
  Country: FR (occurrence: FR)
  Receive Date: 20181011
  Receipt Date: 20181011
  Transmission Date: 20190205
  Serious: Yes (Other)
  Sender: FDA-Public Use
  Company Number: FR-SA-2018SA277974

PATIENT
  Age: 66 Year
  Sex: Female
  Weight: 59 kg

DRUGS (3)
  1. MINOCYCLINE HYDROCHLORIDE. [Suspect]
     Active Substance: MINOCYCLINE HYDROCHLORIDE
     Indication: LUNG DISORDER
     Route: 048
     Dates: start: 20180814, end: 20180820
  2. RIFADINE [Suspect]
     Active Substance: RIFAMPIN
     Indication: INTERVERTEBRAL DISCITIS
     Dosage: 99 MG, DAILY
     Route: 048
     Dates: start: 20180702, end: 20180827
  3. FUCIDIN [FUSIDATE SODIUM] [Suspect]
     Active Substance: FUSIDATE SODIUM
     Indication: INTERVERTEBRAL DISCITIS
     Dosage: 1500 MG, DAILY
     Route: 048
     Dates: start: 20180702, end: 20180827

REACTIONS (2)
  - Jaundice [Recovered/Resolved]
  - Bilirubin conjugated increased [Recovered/Resolved]

NARRATIVE: CASE EVENT DATE: 20180827
